FAERS Safety Report 9512571 (Version 1)
Quarter: 2013Q1

REPORT INFORMATION
  Report Type: Spontaneous
  Country: US (occurrence: None)
  Receive Date: 20130305
  Receipt Date: 20130305
  Transmission Date: 20140127
  Serious: Yes (Other)
  Sender: FDA-Public Use
  Company Number: 163-21880-12051411

PATIENT
  Age: 57 Year
  Sex: Female
  Weight: 70.13 kg

DRUGS (11)
  1. REVLIMID (LENALIDOMIDE) (25 MILLIGRAM, CAPSULES) [Suspect]
     Indication: PLASMA CELL MYELOMA
     Dosage: DAYS 1-21 OF 28 DAYS
     Route: 048
     Dates: start: 20120413
  2. DEXAMETHASONE (DEXAMETHASONE) (UNKNOWN) [Suspect]
     Indication: PRODUCT USED FOR UNKNOWN INDICATION
     Dosage: Q WEEK
     Dates: start: 20120402, end: 20120427
  3. VENLAFAXINE (VENLAFAXINE) (UNKNOWN) [Concomitant]
  4. POTASSIUM CHLORIDE (POTASSIUM CHLORIDE) (UNKNOWN) [Concomitant]
  5. LORAZEPAM (LORAZEPAM) (UNKNOWN) [Concomitant]
  6. ATIVAN (LORAZEPAM) (UNKNOWN) [Concomitant]
  7. BONIVA (IBANDRONATE SODIUM) (UNKNOWN) [Concomitant]
  8. MAXIDE (DYAZIDE) (UNKNOWN) [Concomitant]
  9. ZANTAC (RANITIDINE HYDROCHLORIDE) (UNKNOWN) [Concomitant]
  10. VITAMIN D (ERGOCALCIFEROL) (UNKNOWN) [Concomitant]
  11. (UNKNOWN) [Concomitant]

REACTIONS (4)
  - Tachycardia [None]
  - Anxiety [None]
  - Dizziness [None]
  - Tremor [None]
